FAERS Safety Report 17228134 (Version 1)
Quarter: 2020Q1

REPORT INFORMATION
  Report Type: Report from Study
  Country: None (occurrence: US)
  Receive Date: 20200103
  Receipt Date: 20200103
  Transmission Date: 20200409
  Serious: Yes (Other)
  Sender: FDA-Public Use
  Company Number: US-ABBVIE-18K-163-2495774-00

PATIENT
  Age: 74 Year
  Sex: Female

DRUGS (3)
  1. HUMIRA [Suspect]
     Active Substance: ADALIMUMAB
     Route: 058
  2. METHOTREXATE. [Concomitant]
     Active Substance: METHOTREXATE
     Indication: PRODUCT USED FOR UNKNOWN INDICATION
  3. HUMIRA [Suspect]
     Active Substance: ADALIMUMAB
     Indication: RHEUMATOID ARTHRITIS
     Route: 058

REACTIONS (20)
  - Large intestine polyp [Recovered/Resolved]
  - Dyspnoea exertional [Not Recovered/Not Resolved]
  - Gastric disorder [Not Recovered/Not Resolved]
  - Hypoacusis [Not Recovered/Not Resolved]
  - Cyst [Recovered/Resolved]
  - Enzyme level increased [Not Recovered/Not Resolved]
  - Frequent bowel movements [Recovered/Resolved]
  - Diverticulitis [Recovered/Resolved]
  - Gastric operation [Recovered/Resolved]
  - Nasopharyngitis [Recovering/Resolving]
  - Musculoskeletal pain [Not Recovered/Not Resolved]
  - Diarrhoea [Recovered/Resolved]
  - Anaemia [Not Recovered/Not Resolved]
  - Burning sensation [Recovering/Resolving]
  - Chest pain [Recovering/Resolving]
  - Polyp [Recovered/Resolved]
  - Joint instability [Not Recovered/Not Resolved]
  - Musculoskeletal disorder [Not Recovered/Not Resolved]
  - Somnolence [Not Recovered/Not Resolved]
  - Pain in extremity [Not Recovered/Not Resolved]

NARRATIVE: CASE EVENT DATE: 20180919
